FAERS Safety Report 14967652 (Version 1)
Quarter: 2018Q2

REPORT INFORMATION
  Report Type: Spontaneous
  Country: US (occurrence: US)
  Receive Date: 20180604
  Receipt Date: 20180604
  Transmission Date: 20180711
  Serious: Yes (Other)
  Sender: FDA-Public Use
  Company Number: US-ZYDUS-020294

PATIENT
  Age: 45 Year
  Sex: Male

DRUGS (8)
  1. METFORMIN [Suspect]
     Active Substance: METFORMIN HYDROCHLORIDE
     Indication: INSOMNIA
     Dosage: 4,000MG OF METFORMIN FOR THREE DAYS (1,000MG TABLET MORNING+ 3,000MG NIGHT)
     Route: 048
  2. MIRTAZAPINE. [Concomitant]
     Active Substance: MIRTAZAPINE
     Indication: PRODUCT USED FOR UNKNOWN INDICATION
     Dosage: 30 MG NIGHTLY
     Route: 065
  3. LURASIDONE [Concomitant]
     Active Substance: LURASIDONE
     Indication: PRODUCT USED FOR UNKNOWN INDICATION
     Dosage: 120 MG NIGHTLY
     Route: 065
  4. TRAZODONE [Suspect]
     Active Substance: TRAZODONE HYDROCHLORIDE
     Indication: INSOMNIA
     Route: 065
  5. DIAMORPHINE [Concomitant]
     Active Substance: DIAMORPHINE
     Indication: PRODUCT USED FOR UNKNOWN INDICATION
     Route: 065
  6. VALPROIC ACID. [Concomitant]
     Active Substance: VALPROIC ACID
     Indication: PRODUCT USED FOR UNKNOWN INDICATION
     Dosage: 500 MG ER NIGHTLY
     Route: 065
  7. LISINOPRIL. [Concomitant]
     Active Substance: LISINOPRIL
     Indication: PRODUCT USED FOR UNKNOWN INDICATION
     Dosage: 10 MG DAILY
     Route: 065
  8. PRAZOSIN. [Concomitant]
     Active Substance: PRAZOSIN
     Indication: PRODUCT USED FOR UNKNOWN INDICATION
     Dosage: 5 MG NIGHTLY
     Route: 065

REACTIONS (12)
  - Osmolar gap increased [Recovered/Resolved]
  - Drug dose omission [Unknown]
  - Abdominal pain [Recovered/Resolved]
  - Hyperkalaemia [Recovered/Resolved]
  - Toxicity to various agents [Recovered/Resolved]
  - Vomiting [Recovered/Resolved]
  - Decreased appetite [Recovered/Resolved]
  - Acute kidney injury [Recovered/Resolved]
  - Accidental overdose [Recovered/Resolved]
  - Wrong drug administered [Unknown]
  - Nausea [Recovered/Resolved]
  - Lactic acidosis [Recovered/Resolved]
